FAERS Safety Report 8785724 (Version 1)
Quarter: 2012Q4

REPORT INFORMATION
  Report Type: 
  Country: US (occurrence: US)
  Receive Date: 20120914
  Receipt Date: 20120914
  Transmission Date: 20130627
  Serious: No
  Sender: FDA-Public Use
  Company Number: US-BAYER-2012-095505

PATIENT
  Age: 88 Year
  Sex: Male
  Weight: 73 kg

DRUGS (4)
  1. ALEVE SMOOTH GELS [Suspect]
     Indication: BACK PAIN
     Dosage: UNK
     Route: 048
     Dates: start: 201207
  2. LISINOPRIL [Concomitant]
  3. METOPROLOL [Concomitant]
  4. SIMVASTATIN [Concomitant]

REACTIONS (1)
  - Drug ineffective [None]
